FAERS Safety Report 15150093 (Version 4)
Quarter: 2018Q4

REPORT INFORMATION
  Report Type: Spontaneous
  Country: JP (occurrence: JP)
  Receive Date: 20180716
  Receipt Date: 20181016
  Transmission Date: 20190204
  Serious: Yes (Hospitalization)
  Sender: FDA-Public Use
  Company Number: JP-PFIZER INC-2018284786

PATIENT
  Age: 73 Year
  Sex: Female
  Weight: 42 kg

DRUGS (7)
  1. CELECOX [Suspect]
     Active Substance: CELECOXIB
     Indication: RHEUMATOID ARTHRITIS
  2. EDIROL [Concomitant]
     Active Substance: ELDECALCITOL
     Indication: OSTEOPOROSIS
     Dosage: 0.75 ?G, ONCE DAILY
     Route: 048
     Dates: start: 20171110
  3. PROGRAF [Suspect]
     Active Substance: TACROLIMUS\TACROLIMUS ANHYDROUS
     Indication: RHEUMATOID ARTHRITIS
     Dosage: 1 MG, 1X/DAY
     Route: 048
     Dates: start: 20180511, end: 20180621
  4. CELECOX [Suspect]
     Active Substance: CELECOXIB
     Indication: PAIN
     Dosage: 100 MG, 2X/DAY
     Route: 048
     Dates: start: 20180529, end: 20180605
  5. ASTOMIN /00426502/ [Concomitant]
     Active Substance: DIMEMORFAN PHOSPHATE
     Indication: CHRONIC GASTRITIS
     Dosage: 10 MG, 3X/DAY
     Route: 048
     Dates: start: 20180115
  6. MUCODYNE [Concomitant]
     Active Substance: CARBOCYSTEINE
     Indication: BRONCHIECTASIS
     Dosage: 25 MG, 3X/DAY
     Route: 048
     Dates: start: 20180115
  7. GASTER [FAMOTIDINE] [Concomitant]
     Indication: CHRONIC GASTRITIS
     Dosage: 20 MG, 1X/DAY
     Route: 048
     Dates: start: 20171110

REACTIONS (3)
  - Pneumonia bacterial [Recovered/Resolved]
  - Lip swelling [Recovered/Resolved]
  - Interstitial lung disease [Recovered/Resolved]

NARRATIVE: CASE EVENT DATE: 20180529
